FAERS Safety Report 9148648 (Version 1)
Quarter: 2013Q1

REPORT INFORMATION
  Report Type: Spontaneous
  Country: US (occurrence: US)
  Receive Date: 20130308
  Receipt Date: 20130308
  Transmission Date: 20140127
  Serious: No
  Sender: FDA-Public Use
  Company Number: US-ENDO PHARMACEUTICALS INC.-OPCR20121886

PATIENT
  Age: 72 Year
  Sex: Female

DRUGS (1)
  1. OPANA ER [Suspect]
     Indication: ARTHRITIS
     Route: 048
     Dates: start: 20120914

REACTIONS (3)
  - Throat irritation [Unknown]
  - Back pain [Unknown]
  - Drug effect incomplete [Not Recovered/Not Resolved]
